FAERS Safety Report 10542298 (Version 1)
Quarter: 2014Q4

REPORT INFORMATION
  Report Type: Spontaneous
  Country: US (occurrence: None)
  Receive Date: 20141010
  Receipt Date: 20141010
  Transmission Date: 20150529
  Serious: Yes (Other)
  Sender: FDA-Public Use
  Company Number: 163-POMAL-14052843

PATIENT
  Age: 42 Year
  Sex: Female

DRUGS (7)
  1. ACYCLOVIR. [Concomitant]
     Active Substance: ACYCLOVIR
  2. CARFILZOMIB (CARFILOZOMIB) [Suspect]
     Active Substance: CARFILZOMIB
     Indication: PLASMA CELL MYELOMA
     Dates: start: 201404
  3. POMALYST [Suspect]
     Active Substance: POMALIDOMIDE
     Indication: PLASMA CELL MYELOMA
     Route: 048
     Dates: start: 201404
  4. DEXAMETHASONE(DEXAMETHASONE) [Concomitant]
  5. BACTRIM DS(BACTRIM) [Concomitant]
  6. ZOFRAN(ONDANSETRON HYDROCHLORIDE) [Concomitant]
  7. PRILOSEC(OMEPRAZOLE) [Concomitant]

REACTIONS (1)
  - Neutropenia [None]

NARRATIVE: CASE EVENT DATE: 20140514
